FAERS Safety Report 4767674-7 (Version None)
Quarter: 2005Q3

REPORT INFORMATION
  Report Type: 
  Country: None (occurrence: None)
  Receive Date: 20050912
  Receipt Date: 20050830
  Transmission Date: 20060218
  Serious: Yes (Life-Threatening, Hospitalization, Disabling)
  Sender: FDA-Public Use
  Company Number: 2005122667

PATIENT
  Age: 75 Year
  Sex: Male
  Weight: 73 kg

DRUGS (10)
  1. ATORVASTATIN CALCIUM [Suspect]
     Indication: MYOCARDIAL ISCHAEMIA
     Dosage: (10 MG,), ORAL
     Route: 048
     Dates: start: 20011001
  2. FUROSEMIDE [Concomitant]
  3. MOXONIDINE (MOXONIDINE) [Concomitant]
  4. AZATHIOPRINE [Concomitant]
  5. CYCLOSPORINE [Concomitant]
  6. PREDNISONE [Concomitant]
  7. VALSARTAN [Concomitant]
  8. METOPROLOL TARTRATE [Concomitant]
  9. DOXAZOSIN (DOXAZOSIN) [Concomitant]
  10. ASPIRIN [Concomitant]

REACTIONS (3)
  - ACUTE CORONARY SYNDROME [None]
  - BLOOD CREATINE PHOSPHOKINASE INCREASED [None]
  - TRANSPLANT FAILURE [None]
